FAERS Safety Report 10296550 (Version 1)
Quarter: 2014Q3

REPORT INFORMATION
  Report Type: Spontaneous
  Country: US (occurrence: US)
  Receive Date: 20140710
  Receipt Date: 20140710
  Transmission Date: 20150326
  Serious: No
  Sender: FDA-Public Use
  Company Number: US-ENDO PHARMACEUTICALS INC.-RANI20130003

PATIENT
  Age: 6 Month
  Sex: Female

DRUGS (1)
  1. RANITIDINE [Suspect]
     Active Substance: RANITIDINE\RANITIDINE HYDROCHLORIDE
     Indication: PRODUCT USED FOR UNKNOWN INDICATION
     Route: 048
     Dates: start: 20130702

REACTIONS (4)
  - Foaming at mouth [Unknown]
  - Decreased appetite [Unknown]
  - Vomiting [Unknown]
  - Screaming [Unknown]

NARRATIVE: CASE EVENT DATE: 201307
